FAERS Safety Report 6221740-8 (Version None)
Quarter: 2009Q2

REPORT INFORMATION
  Report Type: 
  Country: None (occurrence: None)
  Receive Date: 20090610
  Receipt Date: 20090604
  Transmission Date: 20091009
  Serious: Yes (Hospitalization)
  Sender: FDA-Public Use
  Company Number: US-ABBOTT-09P-163-0566320-00

PATIENT
  Sex: Male
  Weight: 99.426 kg

DRUGS (35)
  1. RITONAVIR [Suspect]
     Indication: HIV INFECTION
     Route: 048
     Dates: start: 20060426
  2. RITONAVIR [Suspect]
     Route: 048
     Dates: start: 20070629
  3. TMC114 [Concomitant]
     Indication: HIV INFECTION
     Route: 048
     Dates: start: 20060426, end: 20070620
  4. TMC114 [Concomitant]
     Route: 048
     Dates: start: 20070629
  5. TRUVADA [Concomitant]
     Indication: HIV INFECTION
     Route: 048
     Dates: start: 20060425
  6. TRUVADA [Concomitant]
     Route: 048
     Dates: start: 20070629
  7. ALBUTEROL SULFATE [Concomitant]
     Indication: ASTHMA PROPHYLAXIS
     Route: 055
  8. ALBUTEROL [Concomitant]
     Indication: ASTHMA PROPHYLAXIS
     Route: 055
  9. ADVAIR HFA [Concomitant]
     Indication: ASTHMA PROPHYLAXIS
     Route: 055
  10. ATROVENT [Concomitant]
     Indication: ASTHMA PROPHYLAXIS
     Route: 055
  11. NEXIUM [Concomitant]
     Indication: GASTROINTESTINAL DISORDER
     Route: 048
     Dates: start: 20051220
  12. MYCELEX [Concomitant]
     Indication: ANTIFUNGAL PROPHYLAXIS
     Route: 048
     Dates: start: 20060125
  13. ROBITUSSIN [Concomitant]
     Indication: RESPIRATORY TRACT CONGESTION
     Route: 048
     Dates: start: 20060506
  14. NYQUIL [Concomitant]
     Indication: EPISTAXIS
     Route: 048
     Dates: start: 20060506
  15. QUININE SULFATE [Concomitant]
     Indication: MUSCLE SPASMS
     Route: 048
     Dates: start: 20060613
  16. DUONEB [Concomitant]
     Indication: ASTHMA PROPHYLAXIS
     Route: 055
     Dates: start: 20060622
  17. LORAZEPAM [Concomitant]
     Indication: PROPHYLAXIS
     Route: 048
     Dates: start: 20060715
  18. METFORMIN [Concomitant]
     Indication: DIABETES MELLITUS
     Route: 048
     Dates: start: 20061206
  19. VALTREX [Concomitant]
     Indication: HERPES ZOSTER
     Route: 048
     Dates: start: 20061105
  20. CRESTOR [Concomitant]
     Indication: PROPHYLAXIS
     Route: 048
     Dates: start: 20061121
  21. HYDROCHLOROTHIAZIDE [Concomitant]
     Indication: DRUG USE FOR UNKNOWN INDICATION
     Route: 048
     Dates: start: 20061213
  22. SINGULAIR [Concomitant]
     Indication: ASTHMA PROPHYLAXIS
     Route: 048
     Dates: start: 20060517
  23. ZANTAC [Concomitant]
     Indication: GASTROINTESTINAL DISORDER THERAPY
     Route: 048
     Dates: start: 20060517
  24. ZANTAC [Concomitant]
     Route: 048
     Dates: start: 20061128
  25. POTASSIUM CHLORIDE [Concomitant]
     Indication: NUTRITIONAL SUPPORT
     Dates: start: 20070220
  26. AMBIEN [Concomitant]
     Indication: INSOMNIA
     Dates: start: 20070515
  27. ASPIRIN [Concomitant]
     Indication: DRUG USE FOR UNKNOWN INDICATION
     Dates: start: 20070515
  28. BACTRIM [Concomitant]
     Indication: PNEUMOCYSTIS JIROVECI PNEUMONIA
     Dates: start: 20070629
  29. METOPROLOL SUCCINATE [Concomitant]
     Indication: HYPERTENSION
     Dates: start: 20071001
  30. LISINOPRIL [Concomitant]
     Indication: HYPERTENSION
     Dates: start: 20071001
  31. PRAVASTATIN [Concomitant]
     Indication: HYPERLIPIDAEMIA
     Dates: start: 20070703
  32. HERBAL PREPARATION [Concomitant]
     Indication: DRUG USE FOR UNKNOWN INDICATION
     Dates: start: 20080508
  33. LASIX [Concomitant]
     Indication: FLUID RETENTION
     Dates: start: 20081101
  34. VICKS DAYQUIL SINUS PRESSURE + PAIN RELIEF W/ IBUPROFEN [Concomitant]
     Indication: DRUG USE FOR UNKNOWN INDICATION
     Dates: start: 20081001
  35. HALL'S MENTHO-LYPTUS [Concomitant]
     Indication: DRUG USE FOR UNKNOWN INDICATION
     Dates: start: 20080515

REACTIONS (3)
  - CARDIAC ENZYMES INCREASED [None]
  - CHRONIC OBSTRUCTIVE PULMONARY DISEASE [None]
  - ISCHAEMIA [None]
